FAERS Safety Report 20658378 (Version 1)
Quarter: 2022Q1

REPORT INFORMATION
  Report Type: Report from Study
  Country: US (occurrence: US)
  Receive Date: 20220331
  Receipt Date: 20220331
  Transmission Date: 20220423
  Serious: No
  Sender: FDA-Public Use
  Company Number: US-GLAXOSMITHKLINE-US2022GSK048081

PATIENT
  Age: 24 Year
  Sex: Female
  Weight: 70.2 kg

DRUGS (2)
  1. SOTROVIMAB [Suspect]
     Active Substance: SOTROVIMAB
     Indication: COVID-19
     Dosage: UNK, SINGLE
     Route: 065
     Dates: start: 20211230, end: 20211230
  2. ACETAMINOPHEN [Suspect]
     Active Substance: ACETAMINOPHEN
     Indication: Product used for unknown indication
     Dosage: 500 MG
     Route: 065
     Dates: start: 20211226, end: 20220105

REACTIONS (4)
  - Morning sickness [Recovering/Resolving]
  - Nasal congestion [Recovering/Resolving]
  - Increased upper airway secretion [Recovering/Resolving]
  - Maternal exposure during pregnancy [Unknown]

NARRATIVE: CASE EVENT DATE: 20211230
